FAERS Safety Report 24844933 (Version 1)
Quarter: 2025Q1

REPORT INFORMATION
  Report Type: Report from Study
  Country: FR (occurrence: FR)
  Receive Date: 20250115
  Receipt Date: 20250115
  Transmission Date: 20250408
  Serious: Yes (Other)
  Sender: GILEAD
  Company Number: FR-GILEAD-2025-0699744

PATIENT
  Age: 57 Year
  Sex: Male

DRUGS (1)
  1. TENOFOVIR DISOPROXIL FUMARATE [Suspect]
     Active Substance: TENOFOVIR DISOPROXIL FUMARATE
     Indication: HIV infection
     Route: 065

REACTIONS (2)
  - Lipodystrophy acquired [Unknown]
  - Blood cholesterol abnormal [Unknown]
